FAERS Safety Report 6061833-1 (Version None)
Quarter: 2009Q1

REPORT INFORMATION
  Report Type: 
  Country: None (occurrence: None)
  Receive Date: 20090202
  Receipt Date: 20090126
  Transmission Date: 20090719
  Serious: Yes (Life-Threatening, Hospitalization)
  Sender: FDA-Public Use
  Company Number: FR-ASTRAZENECA-2009CG00272

PATIENT
  Age: 41 Year
  Sex: Female

DRUGS (4)
  1. DIPRIVAN [Suspect]
     Indication: INDUCTION OF ANAESTHESIA
     Route: 065
     Dates: start: 20061019, end: 20061019
  2. XYLOCAINE [Suspect]
     Indication: INFILTRATION ANAESTHESIA
     Route: 065
     Dates: start: 20061019, end: 20061019
  3. TRACRIUM [Suspect]
     Indication: INDUCTION OF ANAESTHESIA
     Dates: start: 20061019, end: 20061019
  4. SUFENTA PRESERVATIVE FREE [Suspect]
     Indication: INDUCTION OF ANAESTHESIA
     Dates: start: 20061019, end: 20061019

REACTIONS (2)
  - CARDIO-RESPIRATORY ARREST [None]
  - VENTRICULAR FIBRILLATION [None]
